FAERS Safety Report 8921028 (Version 4)
Quarter: 2013Q1

REPORT INFORMATION
  Report Type: Spontaneous
  Country: DE (occurrence: DE)
  Receive Date: 20121123
  Receipt Date: 20130122
  Transmission Date: 20140127
  Serious: Yes (Hospitalization)
  Sender: FDA-Public Use
  Company Number: DE-AMGEN-DEUSP2012075151

PATIENT
  Age: 67 Year
  Sex: Male
  Weight: 80 kg

DRUGS (5)
  1. XGEVA [Suspect]
     Indication: PROSTATE CANCER
     Dosage: 120 MG, QMO
     Route: 058
     Dates: start: 20110319, end: 20120925
  2. XGEVA [Suspect]
     Indication: METASTASES TO BONE
  3. FIRMAGON                           /01764801/ [Concomitant]
     Indication: PROSTATE CANCER
     Dosage: 80 MG, QMO
     Route: 058
     Dates: start: 20110302, end: 20121120
  4. DOCETAXEL [Concomitant]
     Dosage: UNK
     Dates: start: 201205
  5. ASA [Concomitant]
     Indication: ARTERIAL STENOSIS
     Dosage: 500 MG, UNK

REACTIONS (1)
  - Osteonecrosis of jaw [Not Recovered/Not Resolved]
